FAERS Safety Report 5338726-8 (Version None)
Quarter: 2007Q2

REPORT INFORMATION
  Report Type: 
  Country: None (occurrence: None)
  Receive Date: 20070530
  Receipt Date: 20070523
  Transmission Date: 20071010
  Serious: Yes (Death)
  Sender: FDA-Public Use
  Company Number: B0472907A

PATIENT
  Age: 37 Year
  Sex: Male

DRUGS (1)
  1. AROPAX [Suspect]
     Indication: MAJOR DEPRESSION
     Dosage: .5TAB PER DAY
     Dates: start: 20070427, end: 20070430

REACTIONS (2)
  - COMPLETED SUICIDE [None]
  - DEATH [None]
